FAERS Safety Report 11909379 (Version 3)
Quarter: 2016Q3

REPORT INFORMATION
  Report Type: Spontaneous
  Country: US (occurrence: US)
  Receive Date: 20160112
  Receipt Date: 20160908
  Transmission Date: 20161109
  Serious: Yes (Other)
  Sender: FDA-Public Use
  Company Number: US-TEVA-605081USA

PATIENT
  Age: 61 Year
  Sex: Male

DRUGS (3)
  1. FLUVASTATIN [Concomitant]
     Active Substance: FLUVASTATIN SODIUM
  2. VERAPAMIL [Concomitant]
     Active Substance: VERAPAMIL HYDROCHLORIDE
  3. ZECUITY [Suspect]
     Active Substance: SUMATRIPTAN SUCCINATE
     Indication: HEADACHE
     Route: 062

REACTIONS (13)
  - Application site burn [Recovered/Resolved]
  - Application site warmth [Recovered/Resolved]
  - Product leakage [Unknown]
  - Product physical issue [Unknown]
  - Application site discolouration [Recovered/Resolved]
  - Application site discomfort [Recovered/Resolved]
  - Application site erythema [Recovered/Resolved]
  - Application site pruritus [Recovered/Resolved]
  - Application site irritation [Recovered/Resolved]
  - Application site papules [Recovered/Resolved]
  - Application site pain [Recovered/Resolved]
  - Product adhesion issue [Unknown]
  - Application site urticaria [Recovered/Resolved]

NARRATIVE: CASE EVENT DATE: 20151020
